FAERS Safety Report 19084184 (Version 1)
Quarter: 2021Q2

REPORT INFORMATION
  Report Type: Spontaneous
  Country: FR (occurrence: FR)
  Receive Date: 20210401
  Receipt Date: 20210401
  Transmission Date: 20210717
  Serious: Yes (Life-Threatening)
  Sender: FDA-Public Use
  Company Number: FR-TEVA-2021-FR-1895322

PATIENT
  Age: 47 Year
  Sex: Female
  Weight: 90 kg

DRUGS (5)
  1. INDAPAMIDE. [Suspect]
     Active Substance: INDAPAMIDE
     Indication: HYPERTENSION
     Dosage: 5DOSAGEFORM
     Route: 048
     Dates: start: 20210222, end: 20210222
  2. PERINDOPRIL [Suspect]
     Active Substance: PERINDOPRIL
     Indication: HYPERTENSION
     Dosage: 5DOSAGEFORM
     Route: 048
     Dates: start: 20210222, end: 20210222
  3. SPIRONOLACTONE. [Suspect]
     Active Substance: SPIRONOLACTONE
     Indication: HYPERTENSION
     Dosage: 30DOSAGEFOORM
     Route: 048
     Dates: start: 20210222, end: 20210222
  4. LERCANIDIPINE (CHLORHYDRATE DE) [Suspect]
     Active Substance: LERCANIDIPINE HYDROCHLORIDE
     Indication: HYPERTENSION
     Dosage: 105DOSAGEFORM
     Route: 048
     Dates: start: 20210222, end: 20210222
  5. KARDEGIC [Suspect]
     Active Substance: ASPIRIN DL-LYSINE
     Indication: CAROTID ARTERY STENOSIS
     Dosage: 1 BOX:UNIT DOSE:1DOSAGEFORM
     Route: 048
     Dates: start: 20210222, end: 20210222

REACTIONS (4)
  - Vasoplegia syndrome [Recovered/Resolved]
  - Toxicity to various agents [Recovered/Resolved]
  - Hypovolaemic shock [Recovered/Resolved]
  - Hypokalaemia [Recovered/Resolved]

NARRATIVE: CASE EVENT DATE: 20210222
